FAERS Safety Report 7369689-1 (Version None)
Quarter: 2011Q1

REPORT INFORMATION
  Report Type: 
  Country: None (occurrence: None)
  Receive Date: 20110323
  Receipt Date: 20110316
  Transmission Date: 20110831
  Serious: Yes (Hospitalization)
  Sender: FDA-Public Use
  Company Number: US-AMGEN-USASP2011014678

PATIENT
  Age: 18 Year
  Sex: Female

DRUGS (1)
  1. EPOGEN [Suspect]
     Indication: POSTURAL ORTHOSTATIC TACHYCARDIA SYNDROME
     Dosage: 20000 IU, QWK
     Dates: start: 20080801

REACTIONS (10)
  - HYPOAESTHESIA [None]
  - PARAESTHESIA ORAL [None]
  - BACK PAIN [None]
  - DIZZINESS [None]
  - INJECTION SITE PAIN [None]
  - RESPIRATORY ARREST [None]
  - LOCAL SWELLING [None]
  - CYANOSIS [None]
  - NECK PAIN [None]
  - DYSPNOEA [None]
